FAERS Safety Report 6530909-4 (Version None)
Quarter: 2010Q1

REPORT INFORMATION
  Report Type: 
  Country: None (occurrence: None)
  Receive Date: 20100108
  Receipt Date: 20090529
  Transmission Date: 20100710
  Serious: No
  Sender: FDA-Public Use
  Company Number: A0787398A

PATIENT
  Age: 64 Year
  Sex: Female

DRUGS (3)
  1. LOVAZA [Suspect]
     Indication: DRUG USE FOR UNKNOWN INDICATION
     Dosage: 1CAP PER DAY
     Route: 048
     Dates: start: 20090527
  2. VITAMIN D [Suspect]
     Indication: VITAMIN D DECREASED
     Dosage: 2CAP TWICE PER DAY
     Route: 048
     Dates: start: 20090522
  3. SYNTHROID [Concomitant]

REACTIONS (1)
  - THERAPEUTIC RESPONSE UNEXPECTED [None]
